FAERS Safety Report 16344262 (Version 4)
Quarter: 2019Q4

REPORT INFORMATION
  Report Type: Spontaneous
  Country: US (occurrence: US)
  Receive Date: 20190522
  Receipt Date: 20191002
  Transmission Date: 20200122
  Serious: Yes (Hospitalization, Other)
  Sender: FDA-Public Use
  Company Number: US-PFIZER INC-2019214978

PATIENT
  Age: 72 Year
  Sex: Male
  Weight: 120 kg

DRUGS (5)
  1. LYRICA [Suspect]
     Active Substance: PREGABALIN
     Dosage: 100 MG, 3X/DAY
     Route: 048
  2. DOXAZOSIN [Concomitant]
     Active Substance: DOXAZOSIN MESYLATE
     Dosage: 8 MG, DAILY
     Route: 048
  3. DOXAZOSIN [Concomitant]
     Active Substance: DOXAZOSIN MESYLATE
     Dosage: (DECREASED TO 1/2 TABLET BY MOUTH EVERY DAY)
  4. LOSARTAN. [Concomitant]
     Active Substance: LOSARTAN
     Dosage: 50 MG, DAILY
     Route: 048
  5. LYRICA [Suspect]
     Active Substance: PREGABALIN
     Indication: DIABETIC NEUROPATHY
     Dosage: 150 MG, 3X/DAY

REACTIONS (8)
  - Blood pressure decreased [Unknown]
  - Renal failure [Recovered/Resolved]
  - Fall [Unknown]
  - Cardiovascular disorder [Unknown]
  - Drug dependence [Unknown]
  - Therapeutic product effect incomplete [Unknown]
  - Dehydration [Unknown]
  - Hypoacusis [Unknown]
